FAERS Safety Report 6745571-5 (Version None)
Quarter: 2010Q2

REPORT INFORMATION
  Report Type: 
  Country: None (occurrence: None)
  Receive Date: 20100528
  Receipt Date: 20100520
  Transmission Date: 20101027
  Serious: Yes (Hospitalization)
  Sender: FDA-Public Use
  Company Number: US-JNJFOC-20100509437

PATIENT
  Sex: Female
  Weight: 106.14 kg

DRUGS (12)
  1. DURAGESIC-100 [Suspect]
     Indication: INTERVERTEBRAL DISC DEGENERATION
     Route: 062
  2. FENTANYL CITRATE [Suspect]
     Indication: INTERVERTEBRAL DISC DEGENERATION
     Route: 062
  3. DURAGESIC-100 [Suspect]
     Route: 062
  4. CARISOPRODOL [Concomitant]
     Indication: MUSCLE RELAXANT THERAPY
     Route: 048
  5. GLIMEPIRIDE [Concomitant]
     Indication: DIABETES MELLITUS
     Route: 048
  6. PROMETHAZINE [Concomitant]
     Indication: NAUSEA
     Dosage: AS NEEDED DAILY
     Route: 048
  7. ASPIRIN [Concomitant]
     Indication: ANTICOAGULANT THERAPY
     Route: 048
  8. HYZAAR [Concomitant]
     Indication: HYPERTENSION
     Dosage: 50/12.5 MG
     Route: 048
  9. NEXIUM [Concomitant]
     Indication: GASTROOESOPHAGEAL REFLUX DISEASE
     Route: 048
  10. EFFEXOR XR [Concomitant]
     Indication: PANIC ATTACK
     Route: 048
  11. CLONAZEPAM [Concomitant]
     Indication: PANIC ATTACK
     Route: 048
  12. OXYCODONE [Concomitant]
     Indication: BREAKTHROUGH PAIN
     Dosage: 10/325 MG, 1 EVERY 4-6 HOURS AS NEEDED
     Route: 048

REACTIONS (8)
  - DEHYDRATION [None]
  - FALL [None]
  - FLUID RETENTION [None]
  - INTERVERTEBRAL DISC PROTRUSION [None]
  - LIGAMENT INJURY [None]
  - LIGAMENT RUPTURE [None]
  - SYNOVIAL CYST [None]
  - THERAPEUTIC RESPONSE DECREASED [None]
